FAERS Safety Report 5821846-9 (Version None)
Quarter: 2008Q3

REPORT INFORMATION
  Report Type: 
  Country: None (occurrence: None)
  Receive Date: 20080724
  Receipt Date: 20080714
  Transmission Date: 20090109
  Serious: Yes (Other)
  Sender: FDA-Public Use
  Company Number: DE-PFIZER INC-2008048192

PATIENT
  Sex: Female
  Weight: 47 kg

DRUGS (7)
  1. REVATIO [Suspect]
     Indication: PULMONARY ARTERIAL HYPERTENSION
     Route: 048
  2. TRACLEER [Suspect]
     Indication: PULMONARY ARTERIAL HYPERTENSION
     Route: 048
     Dates: start: 20070501, end: 20071001
  3. TORSEMIDE [Concomitant]
     Route: 048
     Dates: start: 20060901, end: 20080101
  4. ALLOPURINOL [Concomitant]
     Route: 048
     Dates: start: 20040101, end: 20080101
  5. MARCUMAR [Concomitant]
     Route: 048
     Dates: start: 20060901, end: 20080601
  6. DELIX [Concomitant]
  7. AQUAPHOR HEALING OINTMENT [Concomitant]

REACTIONS (1)
  - TRANSAMINASES INCREASED [None]
